FAERS Safety Report 10912498 (Version 1)
Quarter: 2015Q1

REPORT INFORMATION
  Report Type: Spontaneous
  Country: US (occurrence: None)
  Receive Date: 20150310
  Receipt Date: 20150310
  Transmission Date: 20150721
  Serious: No
  Sender: FDA-Public Use
  Company Number: None

PATIENT
  Age: 27 Year
  Sex: Female
  Weight: 49.9 kg

DRUGS (2)
  1. GENERIC ADDERALL ER M AMPHETE SALTS [Suspect]
     Active Substance: AMPHETAMINE ASPARTATE\AMPHETAMINE SULFATE\DEXTROAMPHETAMINE SACCHARATE\DEXTROAMPHETAMINE SULFATE
     Indication: ATTENTION DEFICIT/HYPERACTIVITY DISORDER
     Dosage: TAKEN BY MOUTH
     Dates: start: 20150302, end: 20150305
  2. HYDROCODONE [Concomitant]
     Active Substance: HYDROCODONE

REACTIONS (6)
  - Diarrhoea [None]
  - Irritability [None]
  - Condition aggravated [None]
  - Product substitution issue [None]
  - Drug ineffective [None]
  - Abdominal pain upper [None]

NARRATIVE: CASE EVENT DATE: 20150302
